FAERS Safety Report 5676770-1 (Version None)
Quarter: 2008Q1

REPORT INFORMATION
  Report Type: 
  Country: None (occurrence: None)
  Receive Date: 20080318
  Receipt Date: 20080305
  Transmission Date: 20080703
  Serious: Yes (Hospitalization)
  Sender: FDA-Public Use
  Company Number: FACT0800046

PATIENT
  Age: 29 Year
  Sex: Female

DRUGS (1)
  1. FACTIVE [Suspect]
     Indication: BRONCHOPNEUMONIA
     Dosage: 320 MG, QD, ORAL
     Route: 048
     Dates: start: 20080222, end: 20080222

REACTIONS (3)
  - DRUG TOXICITY [None]
  - RASH MACULAR [None]
  - SKIN EXFOLIATION [None]
